FAERS Safety Report 8349560-9 (Version None)
Quarter: 2012Q2

REPORT INFORMATION
  Report Type: 
  Country: None (occurrence: None)
  Receive Date: 20120510
  Receipt Date: 20120501
  Transmission Date: 20120825
  Serious: Yes (Hospitalization, Other)
  Sender: FDA-Public Use
  Company Number: US-BAYER-2011-120718

PATIENT
  Age: 46 Year
  Sex: Female
  Weight: 47.619 kg

DRUGS (4)
  1. NAPROXEN (ALEVE) [Concomitant]
     Dosage: UNK
     Dates: end: 20090101
  2. MOTRIN [Concomitant]
     Dosage: 800 MG, TID
  3. YAZ [Suspect]
     Dosage: UNK
     Dates: start: 20080101, end: 20080101
  4. IBUPROFEN (ADVIL) [Concomitant]
     Dosage: UNK
     Dates: end: 20090101

REACTIONS (6)
  - GALLBLADDER INJURY [None]
  - DEEP VEIN THROMBOSIS [None]
  - ANHEDONIA [None]
  - PULMONARY EMBOLISM [None]
  - EMOTIONAL DISTRESS [None]
  - PAIN [None]
